FAERS Safety Report 23146811 (Version 1)
Quarter: 2023Q4

REPORT INFORMATION
  Report Type: Spontaneous
  Country: BR (occurrence: BR)
  Receive Date: 20231105
  Receipt Date: 20231105
  Transmission Date: 20240110
  Serious: No
  Sender: FDA-Public Use
  Company Number: BR-SCALL-2023-AMR-083765

PATIENT
  Age: 61 Year
  Sex: Female

DRUGS (1)
  1. DUTASTERIDE [Suspect]
     Active Substance: DUTASTERIDE
     Indication: Alopecia
     Dosage: 0.5 MG, QD
     Route: 065
     Dates: start: 202303, end: 202306

REACTIONS (2)
  - Product prescribing issue [Unknown]
  - Contraindicated product prescribed [Unknown]
